FAERS Safety Report 10094536 (Version 1)
Quarter: 2014Q2

REPORT INFORMATION
  Report Type: Spontaneous
  Country: GB (occurrence: GB)
  Receive Date: 20140422
  Receipt Date: 20140422
  Transmission Date: 20141212
  Serious: Yes (Other)
  Sender: FDA-Public Use
  Company Number: GB-TEVA-475759ISR

PATIENT
  Age: 41 Year
  Sex: Female
  Weight: 72.57 kg

DRUGS (2)
  1. LANSOPRAZOLE [Suspect]
     Indication: GASTROOESOPHAGEAL REFLUX DISEASE
     Route: 048
  2. LANSOPRAZOLE [Suspect]
     Dosage: 30 MILLIGRAM DAILY; REDUCED TO 15MG
     Route: 048
     Dates: start: 20110109

REACTIONS (3)
  - Vitamin B12 deficiency [Not Recovered/Not Resolved]
  - Fatigue [Unknown]
  - Intentional product misuse [Unknown]
